FAERS Safety Report 17077517 (Version 1)
Quarter: 2019Q4

REPORT INFORMATION
  Report Type: Spontaneous
  Country: US (occurrence: US)
  Receive Date: 20191126
  Receipt Date: 20191126
  Transmission Date: 20200122
  Serious: No
  Sender: FDA-Public Use
  Company Number: US-JNJFOC-20191138593

PATIENT
  Age: 64 Year
  Sex: Male

DRUGS (1)
  1. SYMTUZA [Suspect]
     Active Substance: COBICISTAT\DARUNAVIR\EMTRICITABINE\TENOFOVIR ALAFENAMIDE
     Indication: PRODUCT USED FOR UNKNOWN INDICATION
     Dosage: DRV 800MG, COBI150 MG, TAF 10MG,EMTRICITABINE 200MG
     Route: 048

REACTIONS (2)
  - Contusion [Recovered/Resolved]
  - Peripheral swelling [Recovered/Resolved]
